FAERS Safety Report 5439306-6 (Version None)
Quarter: 2007Q3

REPORT INFORMATION
  Report Type: 
  Country: None (occurrence: None)
  Receive Date: 20070831
  Receipt Date: 20070824
  Transmission Date: 20080115
  Serious: Yes (Hospitalization)
  Sender: FDA-Public Use
  Company Number: US-ELI_LILLY_AND_COMPANY-US200707005459

PATIENT
  Age: 83 Year
  Sex: Female
  Weight: 66.213 kg

DRUGS (5)
  1. BYETTA [Suspect]
     Indication: TYPE 2 DIABETES MELLITUS
     Dosage: 5 UG, 2/D
     Route: 058
     Dates: start: 20050701, end: 20050803
  2. BYETTA [Suspect]
     Dosage: 10 UG, 2/D
     Route: 058
     Dates: start: 20050804
  3. GLUCOPHAGE [Concomitant]
     Dosage: UNK, UNKNOWN
     Route: 065
  4. AMARYL [Concomitant]
     Dosage: UNK, UNKNOWN
     Route: 065
  5. ACTOS [Concomitant]
     Dosage: UNK, UNKNOWN
     Route: 065

REACTIONS (8)
  - BLOOD GLUCOSE INCREASED [None]
  - DIARRHOEA [None]
  - FALL [None]
  - HIP FRACTURE [None]
  - NAUSEA [None]
  - NERVOUSNESS [None]
  - OSTEOPENIA [None]
  - WEIGHT DECREASED [None]
